FAERS Safety Report 6962402-9 (Version None)
Quarter: 2010Q3

REPORT INFORMATION
  Report Type: 
  Country: None (occurrence: None)
  Receive Date: 20100902
  Receipt Date: 20100823
  Transmission Date: 20110219
  Serious: Yes (Hospitalization)
  Sender: FDA-Public Use
  Company Number: SE-ELI_LILLY_AND_COMPANY-SE201008005946

PATIENT
  Sex: Female

DRUGS (1)
  1. ZYPADHERA [Suspect]
     Dosage: UNK, UNKNOWN
     Route: 065

REACTIONS (3)
  - FATIGUE [None]
  - HYPOTENSION [None]
  - SOMNOLENCE [None]
